FAERS Safety Report 8262787-X (Version None)
Quarter: 2012Q1

REPORT INFORMATION
  Report Type: 
  Country: None (occurrence: None)
  Receive Date: 20120327
  Receipt Date: 20090202
  Transmission Date: 20120608
  Serious: Yes (Hospitalization)
  Sender: FDA-Public Use
  Company Number: PHEH2008US11338

PATIENT
  Age: 88 Year
  Sex: Female

DRUGS (2)
  1. GLEEVEC [Suspect]
     Dosage: 100 MG, QD ; 400 MG, QD ; 100 MG, QD ; 400 MG, QD
     Dates: start: 20071101
  2. GLEEVEC [Suspect]
     Dosage: 100 MG, QD ; 400 MG, QD ; 100 MG, QD ; 400 MG, QD
     Dates: end: 20080901

REACTIONS (3)
  - OEDEMA PERIPHERAL [None]
  - SWELLING [None]
  - PULMONARY OEDEMA [None]
